FAERS Safety Report 9928376 (Version 2)
Quarter: 2014Q1

REPORT INFORMATION
  Report Type: Spontaneous
  Country: JP (occurrence: JP)
  Receive Date: 20140227
  Receipt Date: 20140304
  Transmission Date: 20141002
  Serious: Yes (Other)
  Sender: FDA-Public Use
  Company Number: JP-PFIZER INC-2014053168

PATIENT
  Age: 71 Year
  Sex: Male

DRUGS (5)
  1. LYRICA [Suspect]
     Indication: PEMPHIGUS
     Dosage: UNK
     Route: 048
  2. ALEVIATIN [Suspect]
     Indication: SURGERY
     Dosage: UNK
     Route: 042
     Dates: start: 20140218, end: 20140220
  3. STEROID ANTIBACTERIALS [Suspect]
     Indication: PEMPHIGUS
     Dosage: 2.5 MG, UNK
     Route: 048
  4. ANESTHETICS [Suspect]
     Indication: SURGERY
     Dosage: UNK
     Dates: start: 20140218, end: 20140218
  5. GLIADEL [Suspect]
     Indication: MALIGNANT GLIOMA
     Dosage: 61.6 MG, 1X/DAY
     Dates: start: 20140218, end: 20140218

REACTIONS (3)
  - Off label use [Unknown]
  - Blood creatine phosphokinase increased [Recovered/Resolved]
  - Lactic acidosis [Recovered/Resolved]
